FAERS Safety Report 10265186 (Version 1)
Quarter: 2014Q2

REPORT INFORMATION
  Report Type: Spontaneous
  Country: US (occurrence: US)
  Receive Date: 20140627
  Receipt Date: 20140627
  Transmission Date: 20141212
  Serious: No
  Sender: FDA-Public Use
  Company Number: US-ASTRAZENECA-2014SE44895

PATIENT
  Age: 69 Year
  Sex: Female
  Weight: 53.1 kg

DRUGS (11)
  1. SYMBICORT [Suspect]
     Indication: ASTHMA
     Dosage: 80/4.5, 2 PUFFS DAILY
     Route: 055
  2. SYMBICORT [Suspect]
     Indication: ASTHMA
     Dosage: 80/4.5, 2 PUFFS BID
     Route: 055
     Dates: start: 20140513
  3. PRO AIR [Suspect]
     Dosage: ONCE EVERY 4 HOURS
     Route: 065
     Dates: start: 201404
  4. PRO AIR [Suspect]
     Dosage: TWICE IN WEEK
     Route: 065
  5. LOVASTATIN [Concomitant]
     Indication: BLOOD CHOLESTEROL ABNORMAL
     Route: 048
     Dates: start: 2013
  6. POTASSIUM CL ER EQ [Concomitant]
     Indication: MINERAL SUPPLEMENTATION
     Dosage: UNKNOWN DAILY
     Route: 048
     Dates: start: 2014
  7. LOSARTAN POTASSIUM [Concomitant]
     Indication: HYPERTENSION
     Route: 048
  8. HYDROCHLOROTHIAZIDE [Concomitant]
     Indication: BLOOD PRESSURE ABNORMAL
     Route: 048
     Dates: start: 2013
  9. AMLODIPINE BESYLATE [Concomitant]
     Indication: BLOOD PRESSURE ABNORMAL
     Route: 048
  10. LANSOPRAZOLE [Concomitant]
     Indication: GASTROOESOPHAGEAL REFLUX DISEASE
     Route: 048
  11. ASPIRIN [Concomitant]
     Indication: BLOOD PRESSURE ABNORMAL
     Route: 048

REACTIONS (5)
  - Asthma [Unknown]
  - Blood potassium decreased [Unknown]
  - Hypersensitivity [Unknown]
  - Intentional product misuse [Recovered/Resolved]
  - Device misuse [Unknown]
